FAERS Safety Report 6272689-6 (Version None)
Quarter: 2009Q3

REPORT INFORMATION
  Report Type: 
  Country: None (occurrence: None)
  Receive Date: 20090715
  Receipt Date: 20090715
  Transmission Date: 20100115
  Serious: Yes (Other)
  Sender: FDA-Public Use
  Company Number: None

PATIENT
  Age: 39 Year
  Sex: Female
  Weight: 65.7716 kg

DRUGS (1)
  1. TOPIRAMATE [Suspect]
     Indication: TREMOR
     Dosage: 3 TABLETS TWICE A DAY PO; CURRENT
     Route: 048
     Dates: start: 20090610, end: 20090715

REACTIONS (3)
  - DRUG INEFFECTIVE [None]
  - PRODUCT SUBSTITUTION ISSUE [None]
  - TREMOR [None]
